FAERS Safety Report 15850018 (Version 1)
Quarter: 2019Q1

REPORT INFORMATION
  Report Type: Spontaneous
  Country: US (occurrence: US)
  Receive Date: 20190121
  Receipt Date: 20190121
  Transmission Date: 20190417
  Serious: No
  Sender: FDA-Public Use
  Company Number: US-SA-2019SA012480

PATIENT
  Age: 78 Year
  Sex: Male

DRUGS (1)
  1. APIDRA [Suspect]
     Active Substance: INSULIN GLULISINE
     Indication: DIABETES MELLITUS
     Dosage: 20 U, TID TO QID
     Route: 065

REACTIONS (9)
  - Hallucination [Unknown]
  - Malaise [Unknown]
  - Confusional state [Unknown]
  - Muscle spasms [Unknown]
  - Wrong product administered [Unknown]
  - Gait disturbance [Unknown]
  - Blood glucose increased [Unknown]
  - Blood glucose decreased [Unknown]
  - Overdose [Unknown]
